FAERS Safety Report 6306417-2 (Version None)
Quarter: 2009Q3

REPORT INFORMATION
  Report Type: 
  Country: None (occurrence: None)
  Receive Date: 20090810
  Receipt Date: 20090729
  Transmission Date: 20100115
  Serious: Yes (Hospitalization)
  Sender: FDA-Public Use
  Company Number: 2009AL002152

PATIENT
  Age: 73 Year
  Sex: Male

DRUGS (18)
  1. DIGOXIN [Suspect]
     Dosage: 0.125MG, QOD, PO
     Route: 048
     Dates: start: 20040101
  2. CARVEDILOL [Concomitant]
  3. ISOSORBIDE [Concomitant]
  4. GUANFACINE HYDROCHLORIDE [Concomitant]
  5. RENAL SOFT GEL [Concomitant]
  6. MONONITRATE [Concomitant]
  7. LISINOPRIL [Concomitant]
  8. CIPROFLOXACIN [Concomitant]
  9. OXYCODONE HCL AND ACETAMINOPHEN [Concomitant]
  10. HYDRALAZINE HCL [Concomitant]
  11. ASPIRIN [Concomitant]
  12. PLAVIX [Concomitant]
  13. COREG [Concomitant]
  14. LASIX [Concomitant]
  15. IMDUR [Concomitant]
  16. K-DUR [Concomitant]
  17. NITROGLYCERIN [Concomitant]
  18. VICODIN [Concomitant]

REACTIONS (23)
  - ANHEDONIA [None]
  - CARDIAC FAILURE [None]
  - CHEST PAIN [None]
  - COGNITIVE DISORDER [None]
  - CORONARY ARTERY DISEASE [None]
  - DYSPNOEA [None]
  - ECONOMIC PROBLEM [None]
  - EMOTIONAL DISORDER [None]
  - FALL [None]
  - HEAD INJURY [None]
  - HYPERTENSION [None]
  - ILL-DEFINED DISORDER [None]
  - ISCHAEMIC CARDIOMYOPATHY [None]
  - MEMORY IMPAIRMENT [None]
  - MENTAL DISORDER [None]
  - MULTIPLE INJURIES [None]
  - PAIN [None]
  - PAIN IN EXTREMITY [None]
  - QUALITY OF LIFE DECREASED [None]
  - RENAL FAILURE [None]
  - SKIN LACERATION [None]
  - SUBARACHNOID HAEMORRHAGE [None]
  - SUBDURAL HAEMATOMA [None]
